FAERS Safety Report 23246579 (Version 2)
Quarter: 2024Q1

REPORT INFORMATION
  Report Type: Spontaneous
  Country: US (occurrence: US)
  Receive Date: 20231130
  Receipt Date: 20240101
  Transmission Date: 20240410
  Serious: No
  Sender: FDA-Public Use
  Company Number: US-SA-SAC20231121001412

PATIENT
  Age: 42 Year
  Sex: Female

DRUGS (6)
  1. DUPIXENT [Suspect]
     Active Substance: DUPILUMAB
     Indication: Dermatitis atopic
     Dosage: 300 MG, QOW
     Route: 058
     Dates: start: 20230517
  2. FLUOCINONIDE [Concomitant]
     Active Substance: FLUOCINONIDE
  3. MIRENA [Concomitant]
     Active Substance: LEVONORGESTREL
  4. VITAMIN D NOS [Concomitant]
     Active Substance: VITAMIN D NOS
  5. FLUOCINONIDE [Concomitant]
     Active Substance: FLUOCINONIDE
  6. VITAMIN D NOS [Concomitant]
     Active Substance: VITAMIN D NOS

REACTIONS (5)
  - Discomfort [Unknown]
  - Sleep disorder due to a general medical condition [Unknown]
  - Injection site reaction [Unknown]
  - Rash [Unknown]
  - Drug ineffective [Unknown]

NARRATIVE: CASE EVENT DATE: 20230101
